FAERS Safety Report 5165768-8 (Version None)
Quarter: 2006Q4

REPORT INFORMATION
  Report Type: 
  Country: None (occurrence: None)
  Receive Date: 20061128
  Receipt Date: 20061114
  Transmission Date: 20070319
  Serious: Yes (Life-Threatening)
  Sender: FDA-Public Use
  Company Number: 06H-083-0311200-00

PATIENT
  Sex: 0

DRUGS (1)
  1. DOBUTAMINE HCL [Suspect]
     Indication: CARDIAC STRESS TEST
     Dosage: 5-40 UG/KG/MIN INTRAVENOUS INFUSION

REACTIONS (1)
  - VENTRICULAR FIBRILLATION [None]
